FAERS Safety Report 25510281 (Version 1)
Quarter: 2025Q3

REPORT INFORMATION
  Report Type: Spontaneous
  Country: US (occurrence: US)
  Receive Date: 20250703
  Receipt Date: 20250703
  Transmission Date: 20251020
  Serious: No
  Sender: MERCK SHARP & DOHME LLC
  Company Number: US-009507513-2301438

PATIENT
  Age: 58 Year
  Sex: Male

DRUGS (5)
  1. IMIPENEM [Suspect]
     Active Substance: IMIPENEM
     Route: 042
  2. AZITHROMYCIN [Suspect]
     Active Substance: AZITHROMYCIN
  3. OMADACYCLINE [Suspect]
     Active Substance: OMADACYCLINE
  4. AMIKACIN [Suspect]
     Active Substance: AMIKACIN
  5. CEFTAZIDIME [Suspect]
     Active Substance: CEFTAZIDIME

REACTIONS (2)
  - Treatment failure [Unknown]
  - No adverse event [Unknown]
